FAERS Safety Report 4700149-X (Version None)
Quarter: 2005Q2

REPORT INFORMATION
  Report Type: 
  Country: None (occurrence: None)
  Receive Date: 20050627
  Receipt Date: 20050613
  Transmission Date: 20051028
  Serious: Yes (Death)
  Sender: FDA-Public Use
  Company Number: US-JNJFOC-20050407181

PATIENT
  Sex: Female
  Weight: 77.11 kg

DRUGS (1)
  1. REMICADE [Suspect]
     Indication: RHEUMATOID ARTHRITIS
     Route: 042

REACTIONS (10)
  - ARRHYTHMIA [None]
  - DEHYDRATION [None]
  - HYPOTENSION [None]
  - HYPOVOLAEMIA [None]
  - HYPOXIA [None]
  - ISCHAEMIC CARDIOMYOPATHY [None]
  - NAUSEA [None]
  - PULMONARY FIBROSIS [None]
  - THYROID GLAND CANCER [None]
  - VOMITING [None]
